FAERS Safety Report 7901848-9 (Version None)
Quarter: 2011Q4

REPORT INFORMATION
  Report Type: 
  Country: None (occurrence: None)
  Receive Date: 20111104
  Receipt Date: 20111022
  Transmission Date: 20120403
  Serious: Yes (Death)
  Sender: FDA-Public Use
  Company Number: 2011AP002461

PATIENT
  Sex: Male

DRUGS (1)
  1. ALLOPURINOL [Suspect]
     Indication: PRODUCT USED FOR UNKNOWN INDICATION
     Dosage: 300 MG;TRPL;QD

REACTIONS (23)
  - OPTIC NERVE HYPOPLASIA [None]
  - SKULL MALFORMATION [None]
  - COLOBOMA [None]
  - SINGLE FUNCTIONAL KIDNEY [None]
  - MICROGNATHIA [None]
  - CONGENITAL HYDROCEPHALUS [None]
  - MICROPHTHALMOS [None]
  - MICROTIA [None]
  - CONGENITAL CENTRAL NERVOUS SYSTEM ANOMALY [None]
  - CONGENITAL DIAPHRAGMATIC HERNIA [None]
  - CARDIAC FAILURE [None]
  - HYPERTELORISM OF ORBIT [None]
  - CLEFT LIP AND PALATE [None]
  - PULMONARY HYPOPLASIA [None]
  - FOETAL EXPOSURE DURING PREGNANCY [None]
  - CRYPTORCHISM [None]
  - ACCESSORY SPLEEN [None]
  - EAR MALFORMATION [None]
  - CONGENITAL ACROCHORDON [None]
  - DIAPHRAGMATIC APLASIA [None]
  - RESPIRATORY FAILURE [None]
  - EXTERNAL AUDITORY CANAL ATRESIA [None]
  - KIDNEY MALFORMATION [None]
